FAERS Safety Report 24464504 (Version 1)
Quarter: 2024Q4

REPORT INFORMATION
  Report Type: Report from Study
  Country: CA (occurrence: CA)
  Receive Date: 20241018
  Receipt Date: 20241018
  Transmission Date: 20250114
  Serious: Yes (Hospitalization, Other)
  Sender: SAMSUNG BIOEPIS
  Company Number: CA-SAMSUNG BIOEPIS-SB-2024-31008

PATIENT
  Age: 43 Year
  Sex: Female

DRUGS (1)
  1. HADLIMA [Suspect]
     Active Substance: ADALIMUMAB-BWWD
     Indication: Colitis ulcerative
     Dates: start: 20220313

REACTIONS (5)
  - Rectal haemorrhage [Unknown]
  - Acute myocardial infarction [Unknown]
  - Coronary artery dissection [Unknown]
  - Colitis ulcerative [Unknown]
  - Product use issue [Unknown]

NARRATIVE: CASE EVENT DATE: 20240801
